FAERS Safety Report 19356186 (Version 1)
Quarter: 2021Q2

REPORT INFORMATION
  Report Type: Other
  Country: GB (occurrence: GB)
  Receive Date: 20210602
  Receipt Date: 20210602
  Transmission Date: 20210717
  Serious: Yes (Other)
  Sender: FDA-Public Use
  Company Number: GB-ROCHE-2838155

PATIENT

DRUGS (1)
  1. MYCOPHENOLATE MOFETIL. [Suspect]
     Active Substance: MYCOPHENOLATE MOFETIL
     Indication: ENDOCRINE OPHTHALMOPATHY
     Route: 065

REACTIONS (26)
  - Fatigue [Unknown]
  - Muscle spasms [Unknown]
  - Hypertension [Unknown]
  - Tonsillitis [Unknown]
  - Liver function test abnormal [Unknown]
  - Headache [Unknown]
  - Dyspnoea [Unknown]
  - Toxicity to various agents [Unknown]
  - Melaena [Unknown]
  - Mouth ulceration [Unknown]
  - Temperature intolerance [Unknown]
  - Speech disorder [Unknown]
  - Syncope [Unknown]
  - Epistaxis [Unknown]
  - Urinary tract infection [Unknown]
  - Diarrhoea [Unknown]
  - Pneumonia viral [Unknown]
  - Nausea [Unknown]
  - Leukopenia [Unknown]
  - Pneumonia bacterial [Unknown]
  - Muscular weakness [Unknown]
  - Asthma [Unknown]
  - Viral labyrinthitis [Unknown]
  - Neurotoxicity [Unknown]
  - Gastrointestinal toxicity [Unknown]
  - Insomnia [Unknown]
